FAERS Safety Report 25087869 (Version 2)
Quarter: 2025Q2

REPORT INFORMATION
  Report Type: Spontaneous
  Country: US (occurrence: US)
  Receive Date: 20250318
  Receipt Date: 20250424
  Transmission Date: 20250716
  Serious: Yes (Other)
  Sender: JOHNSON AND JOHNSON
  Company Number: US-JNJFOC-20250320438

PATIENT
  Age: 42 Year

DRUGS (5)
  1. SPRAVATO [Suspect]
     Active Substance: ESKETAMINE
     Indication: Major depression
     Route: 045
     Dates: start: 202503, end: 20250306
  2. SPRAVATO [Suspect]
     Active Substance: ESKETAMINE
     Route: 045
     Dates: start: 20240813
  3. MYDAYIS [Concomitant]
     Active Substance: AMPHETAMINE ASPARTATE\AMPHETAMINE SULFATE\DEXTROAMPHETAMINE SACCHARATE\DEXTROAMPHETAMINE SULFATE
     Indication: Attention deficit hyperactivity disorder
  4. PRAZOSIN [Concomitant]
     Active Substance: PRAZOSIN
     Indication: Anxiety
  5. LYBALVI [Concomitant]
     Active Substance: OLANZAPINE\SAMIDORPHAN L-MALATE
     Indication: Major depression

REACTIONS (3)
  - Unresponsive to stimuli [Unknown]
  - Sedation [Recovered/Resolved]
  - Insomnia [Unknown]

NARRATIVE: CASE EVENT DATE: 20250306
